FAERS Safety Report 9791467 (Version 1)
Quarter: 2014Q1

REPORT INFORMATION
  Report Type: Report from Study
  Country: CA (occurrence: CA)
  Receive Date: 20140101
  Receipt Date: 20140101
  Transmission Date: 20141002
  Serious: Yes (Hospitalization)
  Sender: FDA-Public Use
  Company Number: PHHY2013CA153985

PATIENT
  Sex: Female

DRUGS (1)
  1. CLOZARIL (CLOZAPINE) [Suspect]
     Dosage: UNK UKN, UNK
     Dates: start: 20050429

REACTIONS (1)
  - H1N1 influenza [Unknown]
